FAERS Safety Report 6955141-1 (Version None)
Quarter: 2010Q3

REPORT INFORMATION
  Report Type: 
  Country: None (occurrence: None)
  Receive Date: 20100830
  Receipt Date: 20100816
  Transmission Date: 20110219
  Serious: No
  Sender: FDA-Public Use
  Company Number: US-B.I. PHARMACEUTICALS,INC./RIDGEFIELD-2010-BP-09294BP

PATIENT
  Sex: Female

DRUGS (4)
  1. SPIRIVA [Suspect]
     Indication: CHRONIC OBSTRUCTIVE PULMONARY DISEASE
     Dosage: 18 MCG
     Route: 055
     Dates: start: 20040101
  2. VITAMIN B-12 [Concomitant]
     Dosage: SHOT
  3. ADVAIR DISKUS 100/50 [Concomitant]
  4. EFFEXOR [Concomitant]

REACTIONS (2)
  - PRURITUS [None]
  - URTICARIA [None]
